FAERS Safety Report 6665243-5 (Version None)
Quarter: 2010Q2

REPORT INFORMATION
  Report Type: 
  Country: None (occurrence: None)
  Receive Date: 20100402
  Receipt Date: 20100331
  Transmission Date: 20101027
  Serious: Yes (Other)
  Sender: FDA-Public Use
  Company Number: IT-ROXANE LABORATORIES, INC.-2010-RO-00365RO

PATIENT
  Age: 45 Year
  Sex: Male

DRUGS (10)
  1. METHOTREXATE [Suspect]
     Indication: PSORIATIC ARTHROPATHY
  2. CYCLOSPORINE [Suspect]
     Indication: PSORIATIC ARTHROPATHY
  3. INFLIXIMAB [Suspect]
     Indication: PSORIATIC ARTHROPATHY
     Route: 042
     Dates: start: 20020101
  4. INFLIXIMAB [Suspect]
     Route: 042
     Dates: end: 20040201
  5. PREDNISOLONE [Suspect]
     Indication: PULMONARY SARCOIDOSIS
     Dosage: 5 MG
  6. PREDNISOLONE [Suspect]
     Dosage: 50 MG
  7. PREDNISOLONE [Suspect]
  8. DICLOFENAC [Suspect]
     Dosage: 100 MG
  9. BROAD SPECTRUM ANTIBIOTICS [Concomitant]
     Indication: INFECTION
  10. LEFLUNOMIDE [Concomitant]
     Indication: PSORIATIC ARTHROPATHY

REACTIONS (3)
  - ADVERSE DRUG REACTION [None]
  - DRUG INEFFECTIVE [None]
  - PULMONARY SARCOIDOSIS [None]
